FAERS Safety Report 16008162 (Version 2)
Quarter: 2019Q1

REPORT INFORMATION
  Report Type: Spontaneous
  Country: KR (occurrence: KR)
  Receive Date: 20190224
  Receipt Date: 20190312
  Transmission Date: 20190418
  Serious: Yes (Death, Hospitalization, Other)
  Sender: FDA-Public Use
  Company Number: KR-009507513-1901KOR012029

PATIENT
  Sex: Female

DRUGS (18)
  1. TANTUM [Concomitant]
     Active Substance: BENZYDAMINE HYDROCHLORIDE
     Dosage: 100 ML, QUANTITY:1, DAYS:2
     Dates: start: 20181219, end: 20181222
  2. SODIUM CHLORIDE. [Concomitant]
     Active Substance: SODIUM CHLORIDE
     Dosage: 50 ML; QUANTITY:1, DAYS:3
     Dates: start: 20181219, end: 20190117
  3. DEXTROSE (+) SODIUM CHLORIDE [Concomitant]
     Dosage: 1000 MILLILITER; QUANTITY:1, DAYS:19
     Dates: start: 20181212, end: 20181228
  4. SODIUM CHLORIDE. [Concomitant]
     Active Substance: SODIUM CHLORIDE
     Dosage: UNK; QUANTITY:1, DAYS:1
     Dates: start: 20181215
  5. SODIUM CHLORIDE. [Concomitant]
     Active Substance: SODIUM CHLORIDE
     Dosage: 100 ML (BAG); QUANTITY:1, DAYS:66
     Dates: start: 20181219, end: 20190117
  6. KEYTRUDA [Suspect]
     Active Substance: PEMBROLIZUMAB
     Indication: OVARIAN CANCER
     Dosage: QUANTITY:2, DAYS:2
     Dates: start: 20181219, end: 20190114
  7. SODIUM CHLORIDE. [Concomitant]
     Active Substance: SODIUM CHLORIDE
     Dosage: UNK
  8. SODIUM CHLORIDE. [Concomitant]
     Active Substance: SODIUM CHLORIDE
     Dosage: 500 ML (BAG); QUANTITY:1, DAYS:4
     Dates: start: 20181217, end: 20181231
  9. GLAMIN [Concomitant]
     Active Substance: AMINO ACIDS
     Dosage: QUANTITY:1, DAYS:4
     Dates: start: 20181213, end: 20190102
  10. HELIXOR [Concomitant]
     Dosage: UNK; QUANTITY:1, DAYS:6
     Dates: start: 20181213, end: 20181225
  11. SODIUM CHLORIDE. [Concomitant]
     Active Substance: SODIUM CHLORIDE
     Dosage: UNK, 50 ML BAG
     Dates: start: 20181219, end: 20190117
  12. MVH INJECTION [Concomitant]
     Dosage: UNK; QUANTITY:1, DAYS:17
     Dates: start: 20181214, end: 20190117
  13. COMBIFLEX LIPID [Concomitant]
     Dosage: UNK; QUANTITY:1, DAYS:5
     Dates: start: 20181214, end: 20181218
  14. WINUF [Concomitant]
     Dosage: UNK; QUANTITY:1, DAYS:19
     Dates: start: 20181219, end: 20190117
  15. SODIUM CHLORIDE. [Concomitant]
     Active Substance: SODIUM CHLORIDE
     Dosage: 0,9% 1000 ML (BAG) QUANTITY:1, DAYS:9
     Dates: start: 20181212, end: 20181231
  16. SODIUM CHLORIDE. [Concomitant]
     Active Substance: SODIUM CHLORIDE
     Dosage: QUANTITY:2, DAYS:2
     Dates: start: 20181213, end: 20181214
  17. FURTMAN [Concomitant]
     Dosage: UNK; QUANTITY:1, DAYS:17
     Dates: start: 20181214, end: 20190117
  18. SODIUM CHLORIDE. [Concomitant]
     Active Substance: SODIUM CHLORIDE
     Dosage: UNK, 100 ML BAG
     Dates: start: 20181219, end: 20190117

REACTIONS (3)
  - Malignant neoplasm progression [Fatal]
  - Adverse event [Unknown]
  - Product use in unapproved indication [Unknown]

NARRATIVE: CASE EVENT DATE: 20181219
